FAERS Safety Report 6056890-2 (Version None)
Quarter: 2009Q1

REPORT INFORMATION
  Report Type: 
  Country: None (occurrence: None)
  Receive Date: 20090129
  Receipt Date: 20090119
  Transmission Date: 20090719
  Serious: Yes (Hospitalization)
  Sender: FDA-Public Use
  Company Number: B0554933A

PATIENT
  Age: 79 Year
  Sex: Male

DRUGS (13)
  1. FORTUM [Suspect]
     Indication: OSTEOARTHRITIS
     Dosage: 1UNIT FOUR TIMES PER DAY
     Route: 042
     Dates: start: 20080125, end: 20080304
  2. CIFLOX [Suspect]
     Indication: OSTEOARTHRITIS
     Route: 048
     Dates: start: 20080125, end: 20080225
  3. NITRODERM [Concomitant]
  4. ADANCOR [Concomitant]
  5. ALDACTONE [Concomitant]
  6. LASILIX [Concomitant]
  7. KENZEN [Concomitant]
  8. OMEPRAZOLE [Concomitant]
  9. ZOXAN [Concomitant]
  10. LEPTICUR [Concomitant]
  11. SERESTA [Concomitant]
  12. CHIBROCADRON [Concomitant]
  13. ORACILLIN [Concomitant]
     Dates: start: 20080110, end: 20080131

REACTIONS (14)
  - BETA 2 MICROGLOBULIN INCREASED [None]
  - C-REACTIVE PROTEIN INCREASED [None]
  - DRUG RASH WITH EOSINOPHILIA AND SYSTEMIC SYMPTOMS [None]
  - EOSINOPHILIA [None]
  - ERYTHEMA [None]
  - FACE OEDEMA [None]
  - GAMMA-GLUTAMYLTRANSFERASE INCREASED [None]
  - LYMPHADENOPATHY [None]
  - NORMOCHROMIC NORMOCYTIC ANAEMIA [None]
  - OEDEMA PERIPHERAL [None]
  - PRURITUS [None]
  - RASH MACULO-PAPULAR [None]
  - SKIN EXFOLIATION [None]
  - TOXIC SKIN ERUPTION [None]
